FAERS Safety Report 5069798-6 (Version None)
Quarter: 2006Q3

REPORT INFORMATION
  Report Type: 
  Country: None (occurrence: None)
  Receive Date: 20060803
  Receipt Date: 20060725
  Transmission Date: 20061208
  Serious: No
  Sender: FDA-Public Use
  Company Number: GB-JNJFOC-20051200041

PATIENT
  Sex: Male
  Weight: 67 kg

DRUGS (10)
  1. REMICADE [Suspect]
     Indication: RHEUMATOID ARTHRITIS
     Route: 042
  2. SULFASALAZINE [Concomitant]
  3. LEFLUNOMIDE [Concomitant]
  4. AMITRIPTYLINE HCL [Concomitant]
  5. CELECOXIB [Concomitant]
  6. ACETAMINOPHEN W/ CODEINE [Concomitant]
  7. FUROSEMIDE [Concomitant]
  8. LANZOPRAZOLE [Concomitant]
  9. QUININE SULFATE [Concomitant]
  10. TRAMADOL HCL [Concomitant]

REACTIONS (1)
  - SKIN LESION [None]
